FAERS Safety Report 5071529-0 (Version None)
Quarter: 2006Q3

REPORT INFORMATION
  Report Type: 
  Country: None (occurrence: None)
  Receive Date: 20060803
  Receipt Date: 20060803
  Transmission Date: 20061208
  Serious: Yes (Other)
  Sender: FDA-Public Use
  Company Number: None

PATIENT
  Age: 11 Year
  Sex: Male
  Weight: 34.0198 kg

DRUGS (2)
  1. ZYRTEC [Suspect]
     Indication: MULTIPLE ALLERGIES
     Dosage: ONCE  A DAY DAILY PO
     Route: 048
     Dates: start: 20060331, end: 20060407
  2. ZYRTEC [Suspect]
     Indication: PHARYNGOLARYNGEAL PAIN
     Dosage: ONCE  A DAY DAILY PO
     Route: 048
     Dates: start: 20060331, end: 20060407

REACTIONS (2)
  - ANXIETY [None]
  - SUICIDAL IDEATION [None]
